FAERS Safety Report 16043303 (Version 1)
Quarter: 2019Q1

REPORT INFORMATION
  Report Type: Spontaneous
  Country: US (occurrence: US)
  Receive Date: 20190306
  Receipt Date: 20190306
  Transmission Date: 20190418
  Serious: Yes (Other)
  Sender: FDA-Public Use
  Company Number: US-ASTRAZENECA-2018SF26727

PATIENT

DRUGS (1)
  1. PRILOSEC [Suspect]
     Active Substance: OMEPRAZOLE MAGNESIUM
     Route: 048

REACTIONS (3)
  - Chronic kidney disease [Unknown]
  - Acute kidney injury [Unknown]
  - End stage renal disease [Unknown]
